FAERS Safety Report 6286121-X (Version None)
Quarter: 2009Q3

REPORT INFORMATION
  Report Type: 
  Country: None (occurrence: None)
  Receive Date: 20090728
  Receipt Date: 20090721
  Transmission Date: 20100115
  Serious: Yes (Life-Threatening)
  Sender: FDA-Public Use
  Company Number: US-ROCHE-639557

PATIENT
  Sex: Female
  Weight: 54.4 kg

DRUGS (5)
  1. PEG-INTERFERON ALFA 2A (RO 25-8310) [Suspect]
     Route: 065
     Dates: start: 20080617
  2. RIBAVIRIN [Suspect]
     Route: 065
     Dates: start: 20080617
  3. BLINDED NITAZOXANIDE [Suspect]
     Route: 065
     Dates: start: 20080617
  4. CITALOPRAM HYDROBROMIDE [Concomitant]
     Dates: start: 20090507, end: 20090512
  5. HYDROCODONE [Concomitant]
     Dates: start: 20090507, end: 20090512

REACTIONS (1)
  - LUNG ADENOCARCINOMA METASTATIC [None]
